FAERS Safety Report 8921079 (Version 1)
Quarter: 2012Q4

REPORT INFORMATION
  Report Type: Report from Study
  Country: DE (occurrence: DE)
  Receive Date: 20121121
  Receipt Date: 20121121
  Transmission Date: 20130627
  Serious: Yes (Hospitalization)
  Sender: FDA-Public Use
  Company Number: DE-TEVA-337829USA

PATIENT
  Age: 65 Year
  Sex: Male

DRUGS (5)
  1. TREANDA [Suspect]
     Route: 042
     Dates: start: 20120229
  2. RITUXIMAB [Suspect]
     Route: 042
     Dates: start: 20120228
  3. ALIZAPRIDE HYDROCHLORIDE [Concomitant]
     Dates: start: 20120228
  4. PREDNISOLONE [Concomitant]
     Dates: start: 20120228
  5. CLEMASTINE [Concomitant]
     Dates: start: 20120228

REACTIONS (1)
  - Gallbladder adenocarcinoma [Not Recovered/Not Resolved]
